FAERS Safety Report 17026319 (Version 1)
Quarter: 2019Q4

REPORT INFORMATION
  Report Type: Spontaneous
  Country: IT (occurrence: IT)
  Receive Date: 20191113
  Receipt Date: 20191113
  Transmission Date: 20200122
  Serious: Yes (Hospitalization, Other)
  Sender: FDA-Public Use
  Company Number: IT-SA-2019SA309990

PATIENT
  Age: 31 Year
  Sex: Male

DRUGS (1)
  1. ALEMTUZUMAB [Suspect]
     Active Substance: ALEMTUZUMAB
     Indication: RELAPSING-REMITTING MULTIPLE SCLEROSIS
     Dosage: 12 MG, QD

REACTIONS (4)
  - Dyspnoea exertional [Recovered/Resolved]
  - Interstitial lung disease [Recovered/Resolved]
  - Acute respiratory failure [Recovered/Resolved]
  - Cough [Recovered/Resolved]
